FAERS Safety Report 24604474 (Version 1)
Quarter: 2024Q4

REPORT INFORMATION
  Report Type: Report from Study
  Country: BE (occurrence: BE)
  Receive Date: 20241111
  Receipt Date: 20241111
  Transmission Date: 20250114
  Serious: Yes (Other)
  Sender: GLAXOSMITHKLINE
  Company Number: None

PATIENT

DRUGS (19)
  1. EPOPROSTENOL SODIUM [Suspect]
     Active Substance: EPOPROSTENOL SODIUM
     Indication: Pulmonary arterial hypertension
     Dosage: 2 NG/KG (1 MINUTE)
     Route: 042
     Dates: start: 20220713, end: 20220715
  2. EPOPROSTENOL SODIUM [Suspect]
     Active Substance: EPOPROSTENOL SODIUM
     Indication: Pulmonary arterial hypertension
     Dosage: 6 NG/KG, 1 MINUTE
     Route: 042
     Dates: start: 20220715, end: 20220719
  3. EPOPROSTENOL SODIUM [Suspect]
     Active Substance: EPOPROSTENOL SODIUM
     Dosage: 7 NG/KG, 1 MINUTE
     Route: 042
     Dates: start: 20220719, end: 20220720
  4. EPOPROSTENOL SODIUM [Suspect]
     Active Substance: EPOPROSTENOL SODIUM
     Dosage: 8 NG/KG (1 MINUTE)
     Route: 042
     Dates: start: 20220720, end: 20220727
  5. EPOPROSTENOL SODIUM [Suspect]
     Active Substance: EPOPROSTENOL SODIUM
     Dosage: 10 NG/KG, 1 MINUTES
     Route: 042
     Dates: start: 20220727, end: 20220817
  6. EPOPROSTENOL SODIUM [Suspect]
     Active Substance: EPOPROSTENOL SODIUM
     Dosage: 10.5 NG/KG, 1 MINUTES
     Route: 042
     Dates: start: 20220817, end: 20220823
  7. EPOPROSTENOL SODIUM [Suspect]
     Active Substance: EPOPROSTENOL SODIUM
     Dosage: 11 NG/KG, 1 MINUTES
     Route: 042
     Dates: start: 20220823, end: 20220829
  8. EPOPROSTENOL SODIUM [Suspect]
     Active Substance: EPOPROSTENOL SODIUM
     Dosage: 11.5 NG/KG, 1 MINUTES
     Route: 042
     Dates: start: 20220829, end: 20220912
  9. EPOPROSTENOL SODIUM [Suspect]
     Active Substance: EPOPROSTENOL SODIUM
     Dosage: 12 NG/KG, 1 MINUTES
     Route: 042
     Dates: start: 20220912, end: 20220920
  10. EPOPROSTENOL SODIUM [Suspect]
     Active Substance: EPOPROSTENOL SODIUM
     Dosage: 11.5 NG/KG, 1 MINUTES
     Route: 042
     Dates: start: 20220920, end: 20230117
  11. EPOPROSTENOL SODIUM [Suspect]
     Active Substance: EPOPROSTENOL SODIUM
     Dosage: 12 NG/KG, 1 MINUTES
     Route: 042
     Dates: start: 20230117, end: 20230125
  12. EPOPROSTENOL SODIUM [Suspect]
     Active Substance: EPOPROSTENOL SODIUM
     Dosage: 12.5 NG/KG, 1 MINUTES
     Route: 042
     Dates: start: 20230125, end: 20230208
  13. EPOPROSTENOL SODIUM [Suspect]
     Active Substance: EPOPROSTENOL SODIUM
     Dosage: 13 NG/KG, 1 MINUTES
     Route: 042
     Dates: start: 20230208, end: 20230221
  14. EPOPROSTENOL SODIUM [Suspect]
     Active Substance: EPOPROSTENOL SODIUM
     Dosage: 14 NG/KG, 1 MINUTES
     Route: 042
     Dates: start: 20230221, end: 20231017
  15. EPOPROSTENOL SODIUM [Suspect]
     Active Substance: EPOPROSTENOL SODIUM
     Dosage: 13 NG/KG, 1 MINUTES
     Route: 042
     Dates: start: 20231014, end: 20231024
  16. EPOPROSTENOL SODIUM [Suspect]
     Active Substance: EPOPROSTENOL SODIUM
     Dosage: 12 NG/KG, 1 MINUTES
     Route: 042
     Dates: start: 20231024
  17. MACITENTAN [Suspect]
     Active Substance: MACITENTAN
     Indication: Pulmonary arterial hypertension
     Dosage: 10 MG
     Route: 048
     Dates: start: 20220715
  18. MACITENTAN [Suspect]
     Active Substance: MACITENTAN
     Indication: Pulmonary arterial hypertension
  19. TADALAFIL [Concomitant]
     Active Substance: TADALAFIL
     Indication: Pulmonary arterial hypertension
     Dosage: 40 MG
     Route: 048
     Dates: start: 20220718

REACTIONS (22)
  - Leukopenia [Recovered/Resolved with Sequelae]
  - Thrombocytopenia [Recovered/Resolved]
  - Hypertensive nephropathy [Not Recovered/Not Resolved]
  - Supraventricular tachycardia [Recovered/Resolved]
  - Atrial flutter [Unknown]
  - Normocytic anaemia [Unknown]
  - Splenomegaly [Unknown]
  - Folate deficiency [Unknown]
  - Muscular weakness [Unknown]
  - Nausea [Recovered/Resolved]
  - Pain in jaw [Not Recovered/Not Resolved]
  - Headache [Recovered/Resolved]
  - Myalgia [Recovered/Resolved]
  - Decreased appetite [Recovered/Resolved]
  - Insomnia [Recovered/Resolved with Sequelae]
  - Dysphagia [Recovered/Resolved]
  - Hypertension [Recovered/Resolved]
  - Dizziness [Recovered/Resolved]
  - Hypotension [Recovered/Resolved]
  - Fatigue [Unknown]
  - Taste disorder [Unknown]
  - Pain in extremity [Recovered/Resolved]

NARRATIVE: CASE EVENT DATE: 20220720
